FAERS Safety Report 6456194-X (Version None)
Quarter: 2009Q4

REPORT INFORMATION
  Report Type: 
  Country: None (occurrence: None)
  Receive Date: 20091125
  Receipt Date: 20091112
  Transmission Date: 20100525
  Serious: No
  Sender: FDA-Public Use
  Company Number: US-ELI_LILLY_AND_COMPANY-US200910002300

PATIENT
  Sex: Female

DRUGS (7)
  1. FORTEO [Suspect]
     Dosage: UNK, UNK
     Dates: start: 20090812
  2. NEXIUM [Concomitant]
  3. LASIX [Concomitant]
  4. POTASSIUM CHLORIDE [Concomitant]
  5. GABAPENTIN [Concomitant]
  6. NAPROXEN [Concomitant]
  7. PERCOCET [Concomitant]
     Indication: ARTHRALGIA
     Dosage: UNK, AS NEEDED

REACTIONS (1)
  - NO ADVERSE EVENT [None]
